FAERS Safety Report 4397562-X (Version None)
Quarter: 2004Q3

REPORT INFORMATION
  Report Type: 
  Country: None (occurrence: None)
  Receive Date: 20040708
  Receipt Date: 20040624
  Transmission Date: 20050211
  Serious: Yes (Life-Threatening, Hospitalization)
  Sender: FDA-Public Use
  Company Number: 2003AP00316

PATIENT
  Age: 88 Year
  Sex: Male
  Weight: 43.5 kg

DRUGS (11)
  1. OMEPRAL [Suspect]
     Indication: GASTRIC ULCER HAEMORRHAGE
     Dosage: 40 MG DAILY IVD
     Route: 041
     Dates: start: 20021114, end: 20021117
  2. OMEPRAL [Suspect]
     Indication: GASTRIC ULCER
     Dosage: 20 MG DAILY PO
     Route: 048
     Dates: start: 20021118, end: 20021125
  3. VITAMEDIN [Concomitant]
  4. LACTEC [Concomitant]
  5. SOLITA-T3 [Concomitant]
  6. NIFLAN [Concomitant]
  7. SANCOBA [Concomitant]
  8. PERDIPINE [Concomitant]
  9. DIAZEPAM [Concomitant]
  10. JUVELA NICOTINATE [Concomitant]
  11. ALLOPURINOL TAB [Concomitant]

REACTIONS (3)
  - ACQUIRED PYLORIC STENOSIS [None]
  - ANXIETY [None]
  - GASTRIC CANCER [None]
